APPROVED DRUG PRODUCT: DOCETAXEL
Active Ingredient: DOCETAXEL
Strength: 80MG/8ML (10MG/ML)
Dosage Form/Route: INJECTABLE;INJECTION
Application: A210848 | Product #001 | TE Code: AP
Applicant: MYLAN LABORATORIES LTD
Approved: Jul 6, 2018 | RLD: No | RS: No | Type: RX